FAERS Safety Report 21288408 (Version 1)
Quarter: 2022Q3

REPORT INFORMATION
  Report Type: Spontaneous
  Country: US (occurrence: US)
  Receive Date: 20220902
  Receipt Date: 20220902
  Transmission Date: 20221027
  Serious: No
  Sender: FDA-Public Use
  Company Number: US-ABBVIE-22K-163-4256517-00

PATIENT
  Sex: Female
  Weight: 47.670 kg

DRUGS (8)
  1. DUOPA [Suspect]
     Active Substance: CARBIDOPA\LEVODOPA
     Indication: Parkinson^s disease
     Route: 050
     Dates: start: 2010
  2. DUOPA [Suspect]
     Active Substance: CARBIDOPA\LEVODOPA
  3. GALANTAMINE [Concomitant]
     Active Substance: GALANTAMINE
     Indication: Prophylaxis
  4. FAMOTIDINE [Concomitant]
     Active Substance: FAMOTIDINE
     Indication: Dyspepsia
  5. QUETIAPINE [Concomitant]
     Active Substance: QUETIAPINE
     Indication: Cognitive disorder
  6. NUPLAZID [Concomitant]
     Active Substance: PIMAVANSERIN TARTRATE
     Indication: Hallucination
  7. MODERNA COVID-19 VACCINE [Concomitant]
     Active Substance: ELASOMERAN
     Indication: COVID-19 immunisation
     Dosage: MODERNA
     Route: 030
     Dates: start: 20210106, end: 20210106
  8. MODERNA COVID-19 VACCINE [Concomitant]
     Active Substance: ELASOMERAN
     Dosage: MODERNA
     Route: 030
     Dates: start: 20210203, end: 20210203

REACTIONS (6)
  - Flushing [Recovered/Resolved]
  - Device issue [Not Recovered/Not Resolved]
  - Device alarm issue [Not Recovered/Not Resolved]
  - Device connection issue [Not Recovered/Not Resolved]
  - Device use error [Recovered/Resolved]
  - Device occlusion [Not Recovered/Not Resolved]

NARRATIVE: CASE EVENT DATE: 20210101
